FAERS Safety Report 7045059-0 (Version None)
Quarter: 2010Q3

REPORT INFORMATION
  Report Type: 
  Country: None (occurrence: None)
  Receive Date: 20100929
  Receipt Date: 20100608
  Transmission Date: 20110219
  Serious: No
  Sender: FDA-Public Use
  Company Number: US-WYE-H15578210

PATIENT
  Age: 56 Year
  Sex: Female
  Weight: 77.18 kg

DRUGS (6)
  1. PRISTIQ [Suspect]
     Indication: DEPRESSION
     Dosage: 50 MG 1X PER 1 DAY, ORAL, 50 MG 1X PER 1 DAY, ORAL
     Route: 048
     Dates: start: 20100521, end: 20100602
  2. PRISTIQ [Suspect]
     Indication: DEPRESSION
     Dosage: 50 MG 1X PER 1 DAY, ORAL, 50 MG 1X PER 1 DAY, ORAL
     Route: 048
     Dates: start: 20100608
  3. HYDROCODONE BITARTRATE + ACETAMINOPHEN [Concomitant]
  4. PRAMIPEXOLE DIHYDROCHLORIDE [Concomitant]
  5. SIMVASTATIN [Concomitant]
  6. TRAZODONE HCL [Concomitant]

REACTIONS (12)
  - AGEUSIA [None]
  - CONDITION AGGRAVATED [None]
  - DELAYED RECOVERY FROM ANAESTHESIA [None]
  - DEPRESSION [None]
  - DIZZINESS [None]
  - DRUG WITHDRAWAL SYNDROME [None]
  - HEADACHE [None]
  - HEART RATE DECREASED [None]
  - HYPERTENSION [None]
  - INSOMNIA [None]
  - PALPITATIONS [None]
  - PARANOIA [None]
